FAERS Safety Report 8217284-4 (Version None)
Quarter: 2012Q1

REPORT INFORMATION
  Report Type: 
  Country: None (occurrence: None)
  Receive Date: 20120319
  Receipt Date: 20120316
  Transmission Date: 20120608
  Serious: No
  Sender: FDA-Public Use
  Company Number: US-PFIZER INC-2012069951

PATIENT
  Sex: Female
  Weight: 88.889 kg

DRUGS (6)
  1. CHANTIX [Suspect]
     Dosage: UNK
     Route: 048
     Dates: start: 20120101
  2. CHANTIX [Suspect]
     Indication: SMOKING CESSATION THERAPY
     Dosage: 0.5 MG DAILY
     Route: 048
     Dates: start: 20120214, end: 20120101
  3. METFORMIN [Concomitant]
     Indication: DIABETES MELLITUS
     Dosage: 850 MG, 3X/DAY
  4. CLONIDINE [Concomitant]
     Indication: HYPERTENSION
     Dosage: UNK
  5. JANUVIA [Concomitant]
     Indication: DIABETES MELLITUS
     Dosage: 100 MG, DAILY
  6. TYLENOL [Concomitant]
     Indication: ARTHRITIS
     Dosage: 650 MG, 2X/DAY

REACTIONS (1)
  - CHEST PAIN [None]
